FAERS Safety Report 9626236 (Version 1)
Quarter: 2013Q4

REPORT INFORMATION
  Report Type: Spontaneous
  Country: US (occurrence: None)
  Receive Date: 20131015
  Receipt Date: 20131015
  Transmission Date: 20140711
  Serious: Yes (Disabling)
  Sender: FDA-Public Use
  Company Number: None

PATIENT
  Age: 76 Year
  Sex: Male
  Weight: 79.38 kg

DRUGS (2)
  1. CIPRO [Suspect]
     Indication: PROSTATITIS
  2. VITAMIN C [Concomitant]

REACTIONS (2)
  - Pelvic pain [None]
  - Pain in extremity [None]
